FAERS Safety Report 11245852 (Version 2)
Quarter: 2015Q3

REPORT INFORMATION
  Report Type: Report from Study
  Country: JP (occurrence: JP)
  Receive Date: 20150707
  Receipt Date: 20150728
  Transmission Date: 20151125
  Serious: Yes (Hospitalization)
  Sender: FDA-Public Use
  Company Number: JP-009507513-1507JPN001956

PATIENT
  Age: 48 Year
  Sex: Female
  Weight: 72 kg

DRUGS (15)
  1. ALBUMINAR [Concomitant]
     Active Substance: ALBUMIN (HUMAN)
     Dosage: 12.5 G, QD
     Route: 051
     Dates: start: 20150618, end: 20150619
  2. PAXIL [Concomitant]
     Active Substance: PAROXETINE HYDROCHLORIDE
     Dosage: 25 MG, QD
     Route: 048
     Dates: start: 20150606, end: 20150618
  3. LYRICA [Concomitant]
     Active Substance: PREGABALIN
     Indication: PROPHYLAXIS
     Dosage: 25 MG, TID
     Route: 048
     Dates: start: 20150611, end: 20150619
  4. CONSTAN [Concomitant]
     Active Substance: ALPRAZOLAM
     Dosage: 0.4 MG, BID
     Route: 048
     Dates: start: 20150610
  5. LANSOPRAZOLE. [Concomitant]
     Active Substance: LANSOPRAZOLE
     Indication: PROPHYLAXIS
     Dosage: 15 MG, QD
     Route: 048
     Dates: start: 20150524
  6. MAGLAX (MAGNESIUM OXIDE) [Concomitant]
     Active Substance: MAGNESIUM OXIDE
     Indication: PROPHYLAXIS
     Dosage: 330 MG, TID
     Route: 048
     Dates: start: 20150524
  7. MIYA-BM [Concomitant]
     Active Substance: CLOSTRIDIUM BUTYRICUM SPORES STRAIN M-55
     Indication: PROPHYLAXIS
     Dosage: 1 G, TID, FORMULATION: FGR
     Route: 048
     Dates: start: 20150524
  8. CARDENALIN [Concomitant]
     Active Substance: DOXAZOSIN MESYLATE
     Dosage: 1 MG, QD
     Route: 048
     Dates: start: 20150606
  9. DEPAS [Concomitant]
     Active Substance: ETIZOLAM
     Dosage: 1 MG, QD
     Route: 048
     Dates: start: 20150606
  10. AMLODIN (AMLODIPINE MALEATE) [Concomitant]
     Dosage: 5 MG, QD
     Route: 048
     Dates: start: 20150524, end: 20150618
  11. CUBICIN [Suspect]
     Active Substance: DAPTOMYCIN
     Indication: DEVICE RELATED INFECTION
     Dosage: 4.9 MG/KG, QD
     Route: 041
     Dates: start: 20150618, end: 20150622
  12. NICORANDIL [Concomitant]
     Active Substance: NICORANDIL
     Indication: PROPHYLAXIS
     Dosage: 5 MG, TID
     Route: 048
     Dates: start: 20150526
  13. MEILAX [Concomitant]
     Active Substance: ETHYL LOFLAZEPATE
     Dosage: 1 MG, QD
     Route: 048
     Dates: start: 20150606, end: 20150618
  14. ZOLPIDEM TARTRATE. [Concomitant]
     Active Substance: ZOLPIDEM TARTRATE
     Dosage: 10 MG, QD
     Route: 048
     Dates: start: 20150523
  15. ARTIST [Concomitant]
     Active Substance: CARVEDILOL
     Dosage: 10 MG, BID
     Route: 048
     Dates: start: 20150526, end: 20150618

REACTIONS (1)
  - Pleural effusion [Recovered/Resolved]

NARRATIVE: CASE EVENT DATE: 20150619
